FAERS Safety Report 7672094-1 (Version None)
Quarter: 2011Q3

REPORT INFORMATION
  Report Type: 
  Country: None (occurrence: None)
  Receive Date: 20110809
  Receipt Date: 20110801
  Transmission Date: 20111222
  Serious: Yes (Other)
  Sender: FDA-Public Use
  Company Number: PHFR2011GB03173

PATIENT
  Sex: Male

DRUGS (2)
  1. SUNITINIB MALATE [Suspect]
     Dosage: 50 MG/DAILY FOR 4 WEEKS FOLLOWED BY 2 WEEK BREAK TO COMPLETE 6 WEEK CYCLE
     Dates: start: 20080723
  2. ZOLEDRONIC ACID [Suspect]
     Dosage: 4 MG, EVERY 4 WEEKS
     Dates: start: 20080401

REACTIONS (6)
  - PAIN [None]
  - EXPOSED BONE IN JAW [None]
  - GINGIVAL INFECTION [None]
  - OSTEONECROSIS OF JAW [None]
  - OSTEOMYELITIS [None]
  - FISTULA [None]
